FAERS Safety Report 9502709 (Version 2)
Quarter: 2013Q3

REPORT INFORMATION
  Report Type: Spontaneous
  Country: ES (occurrence: ES)
  Receive Date: 20130906
  Receipt Date: 20130913
  Transmission Date: 20140515
  Serious: Yes (Other)
  Sender: FDA-Public Use
  Company Number: ES-BAYER-2013-106851

PATIENT
  Age: 49 Year
  Sex: Female

DRUGS (4)
  1. MIRENA [Suspect]
     Indication: MENORRHAGIA
     Dosage: 20 MCG/24HR, CONT
     Route: 015
     Dates: start: 20121203, end: 20130819
  2. QLAIRA [Suspect]
     Indication: GENITAL HAEMORRHAGE
     Dosage: UNK
     Dates: start: 2013
  3. PROGEVERA [Concomitant]
  4. AMCHAFIBRIN [Concomitant]
     Dosage: UNK
     Dates: start: 20130830

REACTIONS (5)
  - Genital haemorrhage [None]
  - Post procedural haemorrhage [None]
  - Metrorrhagia [None]
  - Drug ineffective [None]
  - Hormone level abnormal [None]
